FAERS Safety Report 10639528 (Version 1)
Quarter: 2014Q4

REPORT INFORMATION
  Report Type: Spontaneous
  Country: US (occurrence: US)
  Receive Date: 20141209
  Receipt Date: 20141209
  Transmission Date: 20150529
  Serious: Yes (Hospitalization)
  Sender: FDA-Public Use
  Company Number: US-SUN PHARMACEUTICAL INDUSTRIES LTD-2014SUN02750

PATIENT
  Age: 47 Year
  Sex: Female

DRUGS (2)
  1. IFOSFAMIDE. [Suspect]
     Active Substance: IFOSFAMIDE
     Indication: CERVIX CARCINOMA STAGE II
     Dosage: 2000 MG/M2, THREE CYCLES
     Route: 065
  2. DOXORUBICIN HYDROCHLORIDE INJECTION 2MG/ML [Suspect]
     Active Substance: DOXORUBICIN HYDROCHLORIDE
     Indication: CERVIX CARCINOMA STAGE II
     Dosage: 40 MG/M2, THREE CYCLES
     Route: 065

REACTIONS (1)
  - Colitis [Unknown]
